FAERS Safety Report 17201924 (Version 1)
Quarter: 2019Q4

REPORT INFORMATION
  Report Type: Spontaneous
  Country: US (occurrence: US)
  Receive Date: 20191203
  Receipt Date: 20191203
  Transmission Date: 20200122
  Serious: Yes (Death)
  Sender: FDA-Public Use
  Company Number: None

PATIENT
  Age: 67 Year
  Sex: Male
  Weight: 70.76 kg

DRUGS (7)
  1. VITAMIN B12 [Concomitant]
     Active Substance: CYANOCOBALAMIN
  2. OMEGA 3 [Concomitant]
     Active Substance: OMEGA-3 FATTY ACIDS
  3. ZANTAC [Suspect]
     Active Substance: RANITIDINE HYDROCHLORIDE
     Indication: GASTROOESOPHAGEAL REFLUX DISEASE
     Dosage: ?          QUANTITY:150 MG MILLIGRAM(S);?
     Route: 048
     Dates: start: 20150515, end: 20191001
  4. GLUCOSOMINE [Concomitant]
  5. PANTOPRAZOLE SODIUM. [Suspect]
     Active Substance: PANTOPRAZOLE SODIUM
  6. MILK THISLE [Concomitant]
  7. NAC [Concomitant]
     Active Substance: ACETYLCYSTEINE

REACTIONS (2)
  - Bladder disorder [None]
  - Abdominal discomfort [None]

NARRATIVE: CASE EVENT DATE: 20191121
